FAERS Safety Report 16974833 (Version 1)
Quarter: 2019Q4

REPORT INFORMATION
  Report Type: Spontaneous
  Country: CN (occurrence: CN)
  Receive Date: 20191030
  Receipt Date: 20191030
  Transmission Date: 20200122
  Serious: Yes (Life-Threatening, Hospitalization)
  Sender: FDA-Public Use
  Company Number: CN-ROCHE-2446389

PATIENT
  Age: 59 Year
  Sex: Female
  Weight: 48 kg

DRUGS (10)
  1. GLUCOSE INJECTION [Concomitant]
     Active Substance: DEXTROSE
     Dosage: SOLVENT FOR OXALIPLATIN FOR INJECTION
     Route: 041
     Dates: start: 20191001, end: 20191001
  2. AVASTIN [Suspect]
     Active Substance: BEVACIZUMAB
     Indication: ADENOCARCINOMA OF COLON
     Route: 042
     Dates: start: 20191001, end: 20191001
  3. SODIUM CHLORIDE. [Concomitant]
     Active Substance: SODIUM CHLORIDE
     Dosage: LOT NO.190419, SOLVENT FOR CALCIUM FOLINATE FOR INJECTION
     Route: 041
     Dates: start: 20191001, end: 20191001
  4. SODIUM CHLORIDE. [Concomitant]
     Active Substance: SODIUM CHLORIDE
     Dosage: LOT NO.190419, SOLVENT FOR IRINOTECAN HYDROCHLORIDE FOR INJECTION
     Route: 041
     Dates: start: 20191001, end: 20191001
  5. FLUOROURACIL. [Suspect]
     Active Substance: FLUOROURACIL
     Indication: ADENOCARCINOMA OF COLON
     Route: 042
     Dates: start: 20191001, end: 20191001
  6. CALCIUM FOLINATE [Suspect]
     Active Substance: LEUCOVORIN CALCIUM
     Indication: ADENOCARCINOMA OF COLON
     Route: 041
     Dates: start: 20191001, end: 20191001
  7. OXALIPLATIN. [Suspect]
     Active Substance: OXALIPLATIN
     Indication: ADENOCARCINOMA OF COLON
     Route: 041
     Dates: start: 20191001, end: 20191001
  8. SODIUM CHLORIDE. [Concomitant]
     Active Substance: SODIUM CHLORIDE
     Dosage: LOT NO.190504, SOLVENT FOR FLUOROURACIL INJECTION
     Route: 041
     Dates: start: 20191001, end: 20191001
  9. IRINOTECAN HYDROCHLORIDE. [Suspect]
     Active Substance: IRINOTECAN HYDROCHLORIDE
     Indication: ADENOCARCINOMA OF COLON
     Route: 041
     Dates: start: 20191001, end: 20191001
  10. SODIUM CHLORIDE. [Concomitant]
     Active Substance: SODIUM CHLORIDE
     Dosage: LOT NO.190504, SOLVENT FOR BEVACIZUMAB
     Route: 041
     Dates: start: 20191001, end: 20191001

REACTIONS (5)
  - Neutrophil count decreased [Recovering/Resolving]
  - Leukoplakia oral [Recovering/Resolving]
  - Pain [Recovering/Resolving]
  - White blood cell count decreased [Recovering/Resolving]
  - Asthenia [Recovering/Resolving]

NARRATIVE: CASE EVENT DATE: 20191010
